FAERS Safety Report 8551325-X (Version None)
Quarter: 2012Q3

REPORT INFORMATION
  Report Type: 
  Country: None (occurrence: None)
  Receive Date: 20120730
  Receipt Date: 20120201
  Transmission Date: 20120928
  Serious: No
  Sender: FDA-Public Use
  Company Number: US-ALLERGAN-1201499US

PATIENT
  Age: 86 Year
  Sex: Female

DRUGS (1)
  1. LUMIGAN [Suspect]
     Indication: INTRAOCULAR PRESSURE TEST
     Dosage: 2 GTT, BID
     Route: 047
     Dates: start: 20120102, end: 20120112

REACTIONS (4)
  - VITREOUS FLOATERS [None]
  - VISION BLURRED [None]
  - EYE IRRITATION [None]
  - EYE PAIN [None]
